FAERS Safety Report 21932930 (Version 1)
Quarter: 2023Q1

REPORT INFORMATION
  Report Type: Spontaneous
  Country: US (occurrence: US)
  Receive Date: 20230131
  Receipt Date: 20230131
  Transmission Date: 20230417
  Serious: Yes (Disabling)
  Sender: FDA-Public Use
  Company Number: US-ALLERGAN-2302574US

PATIENT
  Sex: Male
  Weight: 86.182 kg

DRUGS (2)
  1. LEXAPRO [Suspect]
     Active Substance: ESCITALOPRAM OXALATE
     Indication: Anxiety
     Dosage: 10 MG, QD
     Route: 048
     Dates: start: 20221015, end: 20221028
  2. LEXAPRO [Suspect]
     Active Substance: ESCITALOPRAM OXALATE
     Dosage: 5 MG, QD
     Route: 048
     Dates: start: 20220915, end: 20221014

REACTIONS (10)
  - Metamorphopsia [Not Recovered/Not Resolved]
  - Vision blurred [Not Recovered/Not Resolved]
  - Mental impairment [Not Recovered/Not Resolved]
  - Emotional poverty [Not Recovered/Not Resolved]
  - Night sweats [Recovered/Resolved]
  - Paraesthesia [Not Recovered/Not Resolved]
  - Burning sensation [Recovered/Resolved]
  - Abulia [Not Recovered/Not Resolved]
  - Memory impairment [Not Recovered/Not Resolved]
  - Apathy [Not Recovered/Not Resolved]

NARRATIVE: CASE EVENT DATE: 20220915
